FAERS Safety Report 8047579-9 (Version None)
Quarter: 2012Q1

REPORT INFORMATION
  Report Type: 
  Country: None (occurrence: None)
  Receive Date: 20120116
  Receipt Date: 20120113
  Transmission Date: 20120608
  Serious: Yes (Other)
  Sender: FDA-Public Use
  Company Number: US-GLAXOSMITHKLINE-A0956061A

PATIENT
  Age: 14 Year
  Sex: Female

DRUGS (4)
  1. SINGULAIR [Concomitant]
  2. ALBUTEROL [Concomitant]
  3. ADVAIR DISKUS 100/50 [Suspect]
     Indication: ASTHMA
     Dosage: 1PUFF TWICE PER DAY
     Route: 055
     Dates: start: 20090101, end: 20101201
  4. ASMANEX TWISTHALER [Suspect]
     Indication: ASTHMA
     Dates: start: 20101201, end: 20110701

REACTIONS (3)
  - ASTHMA [None]
  - PRODUCT QUALITY ISSUE [None]
  - THERAPEUTIC RESPONSE DECREASED [None]
